FAERS Safety Report 8834241 (Version 3)
Quarter: 2012Q4

REPORT INFORMATION
  Report Type: 
  Country: US (occurrence: US)
  Receive Date: 20121010
  Receipt Date: 20121204
  Transmission Date: 20130627
  Serious: Yes (Hospitalization, Other)
  Sender: FDA-Public Use
  Company Number: US-009507513-1208USA007598

PATIENT
  Sex: Female

DRUGS (7)
  1. PEG-INTRON [Suspect]
     Indication: HEPATITIS C
     Dosage: UNK
     Dates: start: 20120723
  2. PEG-INTRON [Suspect]
     Dosage: 80 Microgram, UNK
  3. PEG-INTRON [Suspect]
     Dosage: 0.3 units unspecified
     Route: 065
  4. REBETOL [Suspect]
     Indication: HEPATITIS C
     Dosage: UNK UNK, bid
     Dates: start: 20120723
  5. REBETOL [Suspect]
     Dosage: UNK, qd
  6. REBETOL [Suspect]
     Dosage: 200 mg, UNK
     Route: 065
  7. VICTRELIS [Suspect]
     Indication: HEPATITIS C
     Dosage: UNK
     Dates: start: 20120820

REACTIONS (8)
  - Haemoglobin decreased [Unknown]
  - Injection site erythema [Unknown]
  - Pain in extremity [Unknown]
  - Back pain [Unknown]
  - Amnesia [Unknown]
  - Haemoglobin decreased [Unknown]
  - White blood cell count decreased [Unknown]
  - Haemoglobin decreased [Unknown]
